FAERS Safety Report 5915840-7 (Version None)
Quarter: 2008Q4

REPORT INFORMATION
  Report Type: 
  Country: None (occurrence: None)
  Receive Date: 20081010
  Receipt Date: 20080929
  Transmission Date: 20090506
  Serious: Yes (Other)
  Sender: FDA-Public Use
  Company Number: US-PFIZER INC-2008082292

PATIENT
  Sex: Female
  Weight: 77.1 kg

DRUGS (5)
  1. NEURONTIN [Suspect]
     Indication: NEURALGIA
     Route: 048
  2. LYRICA [Suspect]
     Indication: NEURALGIA
     Route: 048
     Dates: start: 20070101, end: 20080901
  3. HYDROCHLOROTHIAZIDE [Concomitant]
  4. VICODIN [Concomitant]
  5. SKELAXIN [Concomitant]

REACTIONS (8)
  - DISTURBANCE IN ATTENTION [None]
  - DRUG INEFFECTIVE [None]
  - FEELING ABNORMAL [None]
  - MEMORY IMPAIRMENT [None]
  - OEDEMA PERIPHERAL [None]
  - SOMNOLENCE [None]
  - TACHYCARDIA [None]
  - WEIGHT INCREASED [None]
